FAERS Safety Report 5096795-7 (Version None)
Quarter: 2006Q3

REPORT INFORMATION
  Report Type: 
  Country: None (occurrence: None)
  Receive Date: 20060831
  Receipt Date: 20060818
  Transmission Date: 20061208
  Serious: Yes (Hospitalization)
  Sender: FDA-Public Use
  Company Number: 2006100583

PATIENT
  Age: 56 Year
  Sex: Male

DRUGS (4)
  1. NEURONTIN [Suspect]
     Indication: POLYNEUROPATHY
     Dosage: 3600 MG (1200 MG, 3 IN 1 D), ORAL
     Route: 048
     Dates: start: 20060328, end: 20060608
  2. HERBAL PREPARATION (HERBAL PREPARATION) [Suspect]
     Indication: POLYNEUROPATHY
     Dosage: 4500 MG (1 D), ORAL
     Route: 048
     Dates: start: 20060522, end: 20060603
  3. NEXIUM [Suspect]
     Indication: POLYNEUROPATHY
     Dosage: 20 MG (20 MG, 1 IN 1 D), ORAL
     Route: 048
     Dates: start: 20060328, end: 20060608
  4. PREDNISONE TAB [Concomitant]

REACTIONS (4)
  - DYSAESTHESIA [None]
  - HEPATITIS CHOLESTATIC [None]
  - HEPATOTOXICITY [None]
  - THERAPEUTIC RESPONSE DECREASED [None]
